FAERS Safety Report 19926093 (Version 1)
Quarter: 2021Q4

REPORT INFORMATION
  Report Type: Spontaneous
  Country: SG (occurrence: SG)
  Receive Date: 20211006
  Receipt Date: 20211006
  Transmission Date: 20220304
  Serious: Yes (Other)
  Sender: FDA-Public Use
  Company Number: SG-ROCHE-2924754

PATIENT
  Age: 54 Year
  Sex: Female

DRUGS (1)
  1. AVASTIN [Suspect]
     Active Substance: BEVACIZUMAB
     Indication: Colorectal cancer
     Route: 065

REACTIONS (5)
  - Metastatic neoplasm [Unknown]
  - Condition aggravated [Unknown]
  - Drug ineffective [Unknown]
  - COVID-19 [Unknown]
  - Defaecation disorder [Unknown]
